FAERS Safety Report 5385873-0 (Version None)
Quarter: 2007Q3

REPORT INFORMATION
  Report Type: 
  Country: None (occurrence: None)
  Receive Date: 20070712
  Receipt Date: 20070706
  Transmission Date: 20080115
  Serious: Yes (Other)
  Sender: FDA-Public Use
  Company Number: US-BOEHRINGER INGELHEIM PHARMACEUTICALS, INC.-2007-BP-09045BP

PATIENT
  Age: 75 Year
  Sex: Female

DRUGS (7)
  1. CLONIDINE HCL [Suspect]
     Indication: HYPERTENSION
     Route: 048
     Dates: end: 20070401
  2. CLONIDINE HCL [Suspect]
     Indication: BLOOD PRESSURE FLUCTUATION
  3. CATAPRES-TTS-1 [Concomitant]
     Indication: HYPERTENSION
     Route: 061
     Dates: start: 20070401
  4. THYROID TAB [Concomitant]
  5. QVAR 40 [Concomitant]
  6. CHLORPHENERMINE [Concomitant]
  7. THEOPHYLLINE [Concomitant]

REACTIONS (5)
  - BLOOD PRESSURE INADEQUATELY CONTROLLED [None]
  - BLOOD PRESSURE INCREASED [None]
  - DIZZINESS [None]
  - FALL [None]
  - GAIT DISTURBANCE [None]
